FAERS Safety Report 19151324 (Version 29)
Quarter: 2024Q3

REPORT INFORMATION
  Report Type: Spontaneous
  Country: CA (occurrence: CA)
  Receive Date: 20210419
  Receipt Date: 20240927
  Transmission Date: 20241017
  Serious: Yes (Other)
  Sender: CELLTRION
  Company Number: CA-CELLTRION INC.-2021CA005292

PATIENT

DRUGS (50)
  1. INFLECTRA [Suspect]
     Active Substance: INFLIXIMAB-DYYB
     Indication: Crohn^s disease
     Dosage: 700 MG, AT 0, 2, 6 WEEK, THEN EVERY 8 WEEKS
     Route: 042
     Dates: start: 20210218
  2. INFLECTRA [Suspect]
     Active Substance: INFLIXIMAB-DYYB
     Dosage: 700 MG, AT 0, 2, 6 WEEK, THEN EVERY 8 WEEKS
     Route: 042
     Dates: start: 20210304
  3. INFLECTRA [Suspect]
     Active Substance: INFLIXIMAB-DYYB
     Dosage: 700 MG, AT 0, 2, 6 WEEK, THEN EVERY 8 WEEKS
     Route: 042
     Dates: start: 20210331
  4. INFLECTRA [Suspect]
     Active Substance: INFLIXIMAB-DYYB
     Dosage: 700 MG, AT 0, 2, 6 WEEK, THEN EVERY 8 WEEKS
     Route: 042
     Dates: start: 20210512, end: 20210512
  5. INFLECTRA [Suspect]
     Active Substance: INFLIXIMAB-DYYB
     Dosage: 700 MG, EVERY 4 WEEKS
     Route: 042
     Dates: start: 20210609
  6. INFLECTRA [Suspect]
     Active Substance: INFLIXIMAB-DYYB
     Dosage: 700 MG, EVERY 4 WEEKS
     Route: 042
     Dates: start: 20210707, end: 20210707
  7. INFLECTRA [Suspect]
     Active Substance: INFLIXIMAB-DYYB
     Dosage: 700 MG, EVERY 4 WEEKS
     Route: 042
     Dates: start: 20210804, end: 20210804
  8. INFLECTRA [Suspect]
     Active Substance: INFLIXIMAB-DYYB
     Dosage: 1400 MG, EVERY 4 WEEKS
     Route: 042
     Dates: start: 20210901
  9. INFLECTRA [Suspect]
     Active Substance: INFLIXIMAB-DYYB
     Dosage: 1400 MG, EVERY 4 WEEKS
     Route: 042
     Dates: start: 20210901
  10. INFLECTRA [Suspect]
     Active Substance: INFLIXIMAB-DYYB
     Dosage: 1400 MG, EVERY 4 WEEKS
     Route: 042
     Dates: start: 20211005
  11. INFLECTRA [Suspect]
     Active Substance: INFLIXIMAB-DYYB
     Dosage: 1400 MG, EVERY 4 WEEKS
     Route: 042
     Dates: start: 20211005
  12. INFLECTRA [Suspect]
     Active Substance: INFLIXIMAB-DYYB
     Dosage: 1400 MG, EVERY 4 WEEKS
     Route: 042
     Dates: start: 20211005
  13. INFLECTRA [Suspect]
     Active Substance: INFLIXIMAB-DYYB
     Dosage: 1400 MG, AFTER 6 WEEKS 3 DAYS (PRESCRIBED EVERY 4 WEEKS)
     Route: 042
     Dates: start: 20211119
  14. INFLECTRA [Suspect]
     Active Substance: INFLIXIMAB-DYYB
     Dosage: 1400 MG, EVERY 4 WEEKS
     Route: 042
     Dates: start: 20211217
  15. INFLECTRA [Suspect]
     Active Substance: INFLIXIMAB-DYYB
     Dosage: 1400 MG, EVERY 4 WEEKS
     Route: 042
     Dates: start: 20220113
  16. INFLECTRA [Suspect]
     Active Substance: INFLIXIMAB-DYYB
     Dosage: 1400 MG, EVERY 4 WEEKS
     Route: 042
     Dates: start: 20220113
  17. INFLECTRA [Suspect]
     Active Substance: INFLIXIMAB-DYYB
     Dosage: 1400 MG, EVERY 4 WEEKS
     Route: 042
     Dates: start: 20220209
  18. INFLECTRA [Suspect]
     Active Substance: INFLIXIMAB-DYYB
     Dosage: 1400 MG, EVERY 4 WEEKS
     Route: 042
     Dates: start: 20220318, end: 20220318
  19. INFLECTRA [Suspect]
     Active Substance: INFLIXIMAB-DYYB
     Dosage: 1400 MG, EVERY 4 WEEKS
     Route: 042
     Dates: start: 20220318, end: 20220318
  20. INFLECTRA [Suspect]
     Active Substance: INFLIXIMAB-DYYB
     Dosage: 1400 MG, EVERY 4 WEEKS
     Route: 042
     Dates: start: 20220412
  21. INFLECTRA [Suspect]
     Active Substance: INFLIXIMAB-DYYB
     Dosage: 1400 MG, EVERY 4 WEEKS
     Route: 042
     Dates: start: 20220510
  22. INFLECTRA [Suspect]
     Active Substance: INFLIXIMAB-DYYB
     Dosage: 1400 MG, EVERY 4 WEEKS
     Route: 042
     Dates: start: 20220607
  23. INFLECTRA [Suspect]
     Active Substance: INFLIXIMAB-DYYB
     Dosage: 1400 MG, EVERY 4 WEEKS
     Route: 042
     Dates: start: 20220706
  24. INFLECTRA [Suspect]
     Active Substance: INFLIXIMAB-DYYB
     Dosage: 1400 MG, EVERY 4 WEEKS
     Route: 042
     Dates: start: 20220803
  25. INFLECTRA [Suspect]
     Active Substance: INFLIXIMAB-DYYB
     Dosage: 1400 MG, EVERY 4 WEEKS
     Route: 042
     Dates: start: 20220831
  26. INFLECTRA [Suspect]
     Active Substance: INFLIXIMAB-DYYB
     Dosage: 1400 MG, EVERY 4 WEEKS
     Route: 042
     Dates: start: 20220831
  27. INFLECTRA [Suspect]
     Active Substance: INFLIXIMAB-DYYB
     Dosage: 1400 MG, AFTER 6 WEEKS 5 DAYS (PRESCRIBED EVERY 4 WEEKS)
     Route: 042
     Dates: start: 20221017
  28. INFLECTRA [Suspect]
     Active Substance: INFLIXIMAB-DYYB
     Dosage: 1400 MG, EVERY 4 WEEKS
     Route: 042
     Dates: start: 20221114
  29. INFLECTRA [Suspect]
     Active Substance: INFLIXIMAB-DYYB
     Dosage: 1400 MG, EVERY 4 WEEKS
     Route: 042
     Dates: start: 20221213
  30. INFLECTRA [Suspect]
     Active Substance: INFLIXIMAB-DYYB
     Dosage: 1400 MG, EVERY 4 WEEKS
     Route: 042
     Dates: start: 20230210
  31. INFLECTRA [Suspect]
     Active Substance: INFLIXIMAB-DYYB
     Dosage: 1400 MG, EVERY 4 WEEKS
     Route: 042
     Dates: start: 20230210
  32. INFLECTRA [Suspect]
     Active Substance: INFLIXIMAB-DYYB
     Dosage: 1400 MG, EVERY 4 WEEKS
     Route: 042
     Dates: start: 20230310
  33. INFLECTRA [Suspect]
     Active Substance: INFLIXIMAB-DYYB
     Dosage: 1400 MG, EVERY 4 WEEKS
     Route: 042
     Dates: start: 20230406
  34. INFLECTRA [Suspect]
     Active Substance: INFLIXIMAB-DYYB
     Dosage: 1400 MG, (10MG/KG), EVERY 4 WEEKS
     Route: 042
     Dates: start: 20230505
  35. INFLECTRA [Suspect]
     Active Substance: INFLIXIMAB-DYYB
     Dosage: 1400 MG, EVERY 4 WEEKS
     Route: 042
     Dates: start: 20231003
  36. INFLECTRA [Suspect]
     Active Substance: INFLIXIMAB-DYYB
     Dosage: 1400 MG, EVERY 4 WEEKS
     Route: 042
     Dates: start: 20231031
  37. INFLECTRA [Suspect]
     Active Substance: INFLIXIMAB-DYYB
     Dosage: 1400 MG, EVERY 4 WEEKS
     Route: 042
     Dates: start: 20231031
  38. INFLECTRA [Suspect]
     Active Substance: INFLIXIMAB-DYYB
     Dosage: 1400 MG, EVERY 4 WEEKS
     Route: 042
     Dates: start: 20231128, end: 20231128
  39. INFLECTRA [Suspect]
     Active Substance: INFLIXIMAB-DYYB
     Dosage: 1400 MG, EVERY 4 WEEKS
     Route: 042
     Dates: start: 20240403
  40. INFLECTRA [Suspect]
     Active Substance: INFLIXIMAB-DYYB
     Dosage: 1400 MG, AFTER 4 WEEKS AND 1 DAY (EVERY 4 WEEKS)
     Route: 042
     Dates: start: 20240502
  41. INFLECTRA [Suspect]
     Active Substance: INFLIXIMAB-DYYB
     Dosage: 1400 MG, EVERY 4 WEEKS
     Route: 042
     Dates: start: 20240626
  42. INFLECTRA [Suspect]
     Active Substance: INFLIXIMAB-DYYB
     Dosage: 1400 MG, EVERY 4 WEEKS
     Route: 042
     Dates: start: 20240626
  43. INFLECTRA [Suspect]
     Active Substance: INFLIXIMAB-DYYB
     Dosage: 1400 MG, AFTER 4 WEEKS
     Route: 042
     Dates: start: 20240724
  44. INFLECTRA [Suspect]
     Active Substance: INFLIXIMAB-DYYB
     Dosage: 1400 MG, EVERY 4 WEEKS
     Route: 042
     Dates: start: 20240821
  45. INFLECTRA [Suspect]
     Active Substance: INFLIXIMAB-DYYB
     Dosage: 1400 MG, EVERY 4 WEEKS
     Route: 042
     Dates: start: 20240821
  46. INFLECTRA [Suspect]
     Active Substance: INFLIXIMAB-DYYB
     Dosage: 1400 MG, AFTER 4 WEEKS (EVERY 4 WEEKS)
     Route: 042
     Dates: start: 20240918
  47. CIPROFLOXACIN [Concomitant]
     Active Substance: CIPROFLOXACIN
     Indication: Fistula
     Dosage: 1 DF
     Route: 042
  48. CIPROFLOXACIN [Concomitant]
     Active Substance: CIPROFLOXACIN
     Dosage: 1 DF, DOSAGE INFO: UNKNOWN
     Route: 065
  49. METRONIDAZOLE BENZOATE [Concomitant]
     Active Substance: METRONIDAZOLE BENZOATE
     Dosage: 1 DF, DOSAGE INFO: UNKNOWN
     Route: 065
  50. METRONIDAZOLE [Concomitant]
     Active Substance: METRONIDAZOLE
     Dosage: 1 DF
     Route: 065

REACTIONS (15)
  - Fistula [Recovering/Resolving]
  - Anal fissure [Recovered/Resolved]
  - Body temperature decreased [Unknown]
  - Weight increased [Unknown]
  - Weight decreased [Unknown]
  - Sleep apnoea syndrome [Unknown]
  - Malaise [Not Recovered/Not Resolved]
  - Arthralgia [Not Recovered/Not Resolved]
  - Blood pressure fluctuation [Recovering/Resolving]
  - Therapeutic response shortened [Unknown]
  - Condition aggravated [Recovered/Resolved]
  - Off label use [Unknown]
  - Off label use [Unknown]
  - Intentional product use issue [Unknown]
  - Inappropriate schedule of product administration [Unknown]

NARRATIVE: CASE EVENT DATE: 20210101
